FAERS Safety Report 7281549-3 (Version None)
Quarter: 2010Q4

REPORT INFORMATION
  Report Type: 
  Country: None (occurrence: None)
  Receive Date: 20101221
  Receipt Date: 20100512
  Transmission Date: 20110411
  Serious: Yes (Life-Threatening, Hospitalization, Other)
  Sender: FDA-Public Use
  Company Number: WAES 1005USA01624

PATIENT
  Age: 66 Year
  Sex: Male
  Weight: 95.2554 kg

DRUGS (9)
  1. JANUVIA [Suspect]
     Indication: DIABETES MELLITUS
     Dosage: 100 MG/DAILY/PO
     Route: 048
     Dates: start: 20061001, end: 20100401
  2. ADVAIR [Concomitant]
  3. ALLEGRA [Concomitant]
  4. ATROVENT [Concomitant]
  5. AVAPRO [Concomitant]
  6. MUCINEX [Concomitant]
  7. PRANDIN [Concomitant]
  8. SYNTHROID [Concomitant]
  9. ALBUTEROL [Concomitant]

REACTIONS (1)
  - PANCREATITIS ACUTE [None]
